FAERS Safety Report 15441449 (Version 1)
Quarter: 2018Q3

REPORT INFORMATION
  Report Type: Spontaneous
  Country: US (occurrence: US)
  Receive Date: 20180928
  Receipt Date: 20180928
  Transmission Date: 20181010
  Serious: Yes (Hospitalization, Other)
  Sender: FDA-Public Use
  Company Number: US-009507513-1809USA009969

PATIENT
  Age: 25 Year
  Sex: Female
  Weight: 92.97 kg

DRUGS (2)
  1. NEXPLANON [Suspect]
     Active Substance: ETONOGESTREL
     Indication: CONTRACEPTION
     Dosage: UNK, RIGHT ARM
     Route: 059
     Dates: end: 201702
  2. IMPLANON [Suspect]
     Active Substance: ETONOGESTREL
     Indication: CONTRACEPTION
     Dosage: 1 IMPLANT
     Route: 059
     Dates: start: 201204

REACTIONS (9)
  - Weight increased [Unknown]
  - Surgery [Not Recovered/Not Resolved]
  - Complication associated with device [Not Recovered/Not Resolved]
  - Overdose [Unknown]
  - Ovarian cyst [Unknown]
  - Amenorrhoea [Unknown]
  - Ovarian cyst [Unknown]
  - Device difficult to use [Not Recovered/Not Resolved]
  - Incorrect drug administration duration [Unknown]

NARRATIVE: CASE EVENT DATE: 201204
